FAERS Safety Report 20796715 (Version 2)
Quarter: 2022Q2

REPORT INFORMATION
  Report Type: Report from Study
  Country: IT (occurrence: IT)
  Receive Date: 20220506
  Receipt Date: 20220516
  Transmission Date: 20220721
  Serious: Yes (Death, Hospitalization, Other)
  Sender: FDA-Public Use
  Company Number: IT-NOVARTISPH-NVSC2022IT102870

PATIENT
  Age: 71 Year
  Sex: Female
  Weight: 50 kg

DRUGS (10)
  1. TAFINLAR [Suspect]
     Active Substance: DABRAFENIB MESYLATE
     Indication: Poorly differentiated thyroid carcinoma
     Dosage: 150 MG, BID
     Route: 048
     Dates: start: 20210514, end: 20220404
  2. TRAMETINIB [Suspect]
     Active Substance: TRAMETINIB
     Indication: Poorly differentiated thyroid carcinoma
     Dosage: 2 MG, QD
     Route: 048
     Dates: start: 20210514, end: 20220404
  3. HEPARIN [Concomitant]
     Active Substance: HEPARIN SODIUM
     Indication: Anticoagulant therapy
     Dosage: UNK
     Route: 065
  4. FUROSEMIDE [Concomitant]
     Active Substance: FUROSEMIDE
     Indication: Product used for unknown indication
     Dosage: 1 DOSAGE FORM
     Route: 065
  5. ALDACTONE [Concomitant]
     Active Substance: SPIRONOLACTONE
     Indication: Product used for unknown indication
     Dosage: UNK
     Route: 065
  6. PREDNISONE [Concomitant]
     Active Substance: PREDNISONE
     Indication: Product used for unknown indication
     Dosage: UNK (1 TABLET AT 8.00 FOR 2 DAYS THEN 1/2 TABLET FOR 3 DAYS, THEN 5 MG 1 TABLET FOR ANOTHER 3 DAYS T
     Route: 065
  7. LEVOTHYROXINE SODIUM [Concomitant]
     Active Substance: LEVOTHYROXINE SODIUM
     Indication: Product used for unknown indication
     Dosage: 1 DOSAGE FORM
     Route: 065
  8. BISOPROLOL [Concomitant]
     Active Substance: BISOPROLOL
     Indication: Product used for unknown indication
     Dosage: 1 DOSAGE FORM
     Route: 065
  9. RAMIPRIL [Concomitant]
     Active Substance: RAMIPRIL
     Indication: Product used for unknown indication
     Dosage: 1 DOSAGE FORM
     Route: 065
  10. LEVOFLOXACIN [Concomitant]
     Active Substance: LEVOFLOXACIN
     Indication: Product used for unknown indication
     Dosage: UNK (1 TABLET AT 8.00 AND 20.00 FOR ANOTHER 3 DAYS THEN STOP)
     Route: 065

REACTIONS (30)
  - Cardiac arrest [Fatal]
  - Pneumonia [Unknown]
  - Pericardial effusion [Unknown]
  - Osteolysis [Unknown]
  - Pleural effusion [Unknown]
  - Hilar lymphadenopathy [Unknown]
  - Dysphagia [Unknown]
  - Dysphonia [Unknown]
  - Vocal cord paralysis [Unknown]
  - Pleural thickening [Unknown]
  - Pulmonary oedema [Unknown]
  - Hypokinesia [Unknown]
  - Akinesia [Unknown]
  - Hypertrophic cardiomyopathy [Unknown]
  - Tricuspid valve incompetence [Unknown]
  - Mitral valve incompetence [Unknown]
  - Pulmonary arterial pressure abnormal [Unknown]
  - Tracheo-oesophageal fistula [Unknown]
  - Pulmonary valve incompetence [Unknown]
  - Essential hypertension [Unknown]
  - Metastases to diaphragm [Unknown]
  - Hypotension [Unknown]
  - Urinary tract infection [Not Recovered/Not Resolved]
  - Cardiac failure congestive [Unknown]
  - Dyspnoea [Not Recovered/Not Resolved]
  - Papillary thyroid cancer [Unknown]
  - Respiratory failure [Not Recovered/Not Resolved]
  - Pneumonitis [Not Recovered/Not Resolved]
  - Cardiac ventricular thrombosis [Unknown]
  - Left ventricular dysfunction [Unknown]

NARRATIVE: CASE EVENT DATE: 20220404
